FAERS Safety Report 24694119 (Version 4)
Quarter: 2025Q2

REPORT INFORMATION
  Report Type: Spontaneous
  Country: NL (occurrence: NL)
  Receive Date: 20241204
  Receipt Date: 20250418
  Transmission Date: 20250717
  Serious: Yes (Death, Other)
  Sender: DR REDDYS
  Company Number: None

PATIENT
  Age: 74 Year
  Sex: Male

DRUGS (16)
  1. SUNITINIB [Suspect]
     Active Substance: SUNITINIB
     Indication: Metastatic renal cell carcinoma
     Dosage: 1D1?50 MG/DAY ON THE STANDARD 4-WEEK ON 2-WEEK OFF SCHEDULE
     Dates: start: 20230121, end: 20230207
  2. SUNITINIB [Suspect]
     Active Substance: SUNITINIB
     Indication: Renal cell carcinoma
  3. SUNITINIB [Suspect]
     Active Substance: SUNITINIB
     Indication: Chromophobe renal cell carcinoma
  4. SUNITINIB [Suspect]
     Active Substance: SUNITINIB
     Indication: Metastases to lymph nodes
  5. SUNITINIB [Suspect]
     Active Substance: SUNITINIB
     Indication: Metastases to liver
  6. SUNITINIB [Suspect]
     Active Substance: SUNITINIB
     Indication: Metastases to bone
  7. EVEROLIMUS [Suspect]
     Active Substance: EVEROLIMUS
     Indication: Chromophobe renal cell carcinoma
  8. EVEROLIMUS [Suspect]
     Active Substance: EVEROLIMUS
     Indication: Metastases to bone
  9. EVEROLIMUS [Suspect]
     Active Substance: EVEROLIMUS
     Indication: Metastases to liver
  10. EVEROLIMUS [Suspect]
     Active Substance: EVEROLIMUS
     Indication: Metastases to lymph nodes
  11. PREDNISONE [Concomitant]
     Active Substance: PREDNISONE
     Indication: Metastatic renal cell carcinoma
  12. PREDNISONE [Concomitant]
     Active Substance: PREDNISONE
     Indication: Renal cell carcinoma
     Dosage: 80 MG/DAY
  13. ACETAMINOPHEN [Concomitant]
     Active Substance: ACETAMINOPHEN
     Indication: Metastatic renal cell carcinoma
  14. ACETAMINOPHEN [Concomitant]
     Active Substance: ACETAMINOPHEN
     Indication: Renal cell carcinoma
  15. PANTOPRAZOLE [Concomitant]
     Active Substance: PANTOPRAZOLE
     Indication: Metastatic renal cell carcinoma
  16. PANTOPRAZOLE [Concomitant]
     Active Substance: PANTOPRAZOLE
     Indication: Renal cell carcinoma

REACTIONS (8)
  - Drug ineffective for unapproved indication [Fatal]
  - Malignant neoplasm progression [Fatal]
  - Drug ineffective [Fatal]
  - Vogt-Koyanagi-Harada disease [Recovered/Resolved]
  - Serous retinal detachment [Recovering/Resolving]
  - Visual acuity reduced [Recovered/Resolved]
  - Subretinal fluid [Recovered/Resolved]
  - Retinal oedema [Recovered/Resolved]
